FAERS Safety Report 19189497 (Version 1)
Quarter: 2021Q2

REPORT INFORMATION
  Report Type: Spontaneous
  Country: US (occurrence: US)
  Receive Date: 20210428
  Receipt Date: 20210428
  Transmission Date: 20210717
  Serious: No
  Sender: FDA-Public Use
  Company Number: US-APOTEX-2020AP024543

PATIENT
  Age: 63 Year
  Sex: Female
  Weight: 68 kg

DRUGS (7)
  1. LATANOPROST. [Suspect]
     Active Substance: LATANOPROST
     Dosage: UNK
     Route: 065
  2. LATANOPROST. [Suspect]
     Active Substance: LATANOPROST
     Dosage: UNK
     Route: 065
  3. KETOROLAC [Suspect]
     Active Substance: KETOROLAC TROMETHAMINE
     Indication: PRODUCT USED FOR UNKNOWN INDICATION
     Dosage: 1 GTT DROPS, BID (ONE DROP IN THE MORNING AND ONE AT NIGHT, TAKING IN RIGHT EYE ON 30 SEP)
     Route: 047
  4. OLOPATADINE. [Suspect]
     Active Substance: OLOPATADINE
     Indication: INFECTION PROPHYLAXIS
     Dosage: 2 GTT DROPS (TWO DROPS TO BOTH EYES)
     Route: 047
  5. LATANOPROST. [Suspect]
     Active Substance: LATANOPROST
     Dosage: UNK
     Route: 065
     Dates: start: 20180713
  6. ZYLAP [Suspect]
     Active Substance: OLANZAPINE
     Indication: EYE DISORDER
     Dosage: UNK
     Route: 065
  7. LATANOPROST. [Suspect]
     Active Substance: LATANOPROST
     Indication: MIGRAINE
     Dosage: UNK (RUBS IT INTO TWO NAILS AND RUBS IN)
     Route: 065
     Dates: start: 20180712

REACTIONS (6)
  - Therapeutic response unexpected [Unknown]
  - Migraine [Recovered/Resolved]
  - Product use in unapproved indication [Unknown]
  - Vomiting [Recovered/Resolved]
  - Wrong technique in product usage process [Unknown]
  - Product prescribing error [Unknown]

NARRATIVE: CASE EVENT DATE: 20200922
